FAERS Safety Report 15326281 (Version 1)
Quarter: 2018Q3

REPORT INFORMATION
  Report Type: Spontaneous
  Country: DK (occurrence: DK)
  Receive Date: 20180828
  Receipt Date: 20180828
  Transmission Date: 20181010
  Serious: Yes (Hospitalization)
  Sender: FDA-Public Use
  Company Number: PHHY2018DK083820

PATIENT
  Age: 12 Year
  Sex: Male

DRUGS (3)
  1. OMNITROPE [Suspect]
     Active Substance: SOMATROPIN
     Indication: BLOOD GROWTH HORMONE
     Dosage: 1.3 MG, QD (STYRKE: 15 MG/1,5 ML)
     Route: 058
     Dates: start: 20140522, end: 20171121
  2. MELATONIN [Concomitant]
     Active Substance: MELATONIN
     Indication: INSOMNIA
     Dosage: 3 MG, UNK (1 STK. EFTER BEHOV, H?JST 1 GANG DAGLIG, STYRKE: 3 MG)
     Route: 048
     Dates: start: 20130516
  3. MIDODRINE [Concomitant]
     Active Substance: MIDODRINE
     Indication: SYNCOPE
     Dosage: 5 MG, UNK (DOSIS: 1 STK. EFTER BEHOV, H?JST 1 GANG DAGLIG, STYRKE: 5 MG)
     Route: 048
     Dates: start: 20140522

REACTIONS (3)
  - Osteomyelitis [Recovering/Resolving]
  - Arthralgia [Recovering/Resolving]
  - Groin pain [Recovering/Resolving]

NARRATIVE: CASE EVENT DATE: 201711
